FAERS Safety Report 9646704 (Version 2)
Quarter: 2014Q2

REPORT INFORMATION
  Report Type: Spontaneous
  Country: US (occurrence: US)
  Receive Date: 20131027
  Receipt Date: 20140418
  Transmission Date: 20141212
  Serious: No
  Sender: FDA-Public Use
  Company Number: US-PURDUE-USA-2013-0103913

PATIENT
  Sex: Female

DRUGS (2)
  1. OXYCONTIN TABLETS [Suspect]
     Indication: PAIN
     Dosage: 80 MG, BID
     Route: 048
  2. OXYCONTIN TABLETS [Suspect]
     Dosage: 80 MG, TID
     Route: 048
     Dates: end: 20051222

REACTIONS (1)
  - Drug ineffective [Unknown]
